FAERS Safety Report 5600857-2 (Version None)
Quarter: 2008Q1

REPORT INFORMATION
  Report Type: 
  Country: None (occurrence: None)
  Receive Date: 20080122
  Receipt Date: 20080122
  Transmission Date: 20080703
  Serious: No
  Sender: FDA-Public Use
  Company Number: None

PATIENT
  Sex: Female
  Weight: 45.3597 kg

DRUGS (3)
  1. DARVOCET-N 100 [Suspect]
     Indication: MIGRAINE
     Dates: start: 19800101
  2. DARVOCET-N 100 [Suspect]
     Indication: PAIN MANAGEMENT
     Dates: start: 19800101
  3. PERCOCET-5 [Suspect]
     Indication: PAIN MANAGEMENT
     Dates: start: 19800101

REACTIONS (4)
  - PHARMACEUTICAL PRODUCT COMPLAINT [None]
  - SWOLLEN TONGUE [None]
  - THROAT IRRITATION [None]
  - THROAT TIGHTNESS [None]
